FAERS Safety Report 12887286 (Version 1)
Quarter: 2016Q4

REPORT INFORMATION
  Report Type: Report from Study
  Country: US (occurrence: US)
  Receive Date: 20161026
  Receipt Date: 20161026
  Transmission Date: 20170207
  Serious: Yes (Death, Life-Threatening)
  Sender: FDA-Public Use
  Company Number: US-JAZZ-2012-US-000457

PATIENT
  Age: 60 Year
  Sex: Male
  Weight: 119 kg

DRUGS (1)
  1. DEFIBROTIDE (INV) [Suspect]
     Active Substance: DEFIBROTIDE SODIUM
     Indication: VENOOCCLUSIVE LIVER DISEASE
     Dosage: 2976 (25 MG/KG/DAY) FOR 2 WEEKS 2 DAYS
     Route: 042
     Dates: start: 20121107, end: 20121123

REACTIONS (3)
  - Hypotension [Not Recovered/Not Resolved]
  - Respiratory failure [Not Recovered/Not Resolved]
  - Venoocclusive disease [Fatal]

NARRATIVE: CASE EVENT DATE: 20121123
